FAERS Safety Report 4783552-1 (Version None)
Quarter: 2005Q3

REPORT INFORMATION
  Report Type: 
  Country: None (occurrence: None)
  Receive Date: 20050928
  Receipt Date: 20050916
  Transmission Date: 20060218
  Serious: Yes (Other)
  Sender: FDA-Public Use
  Company Number: 2005127842

PATIENT
  Age: 34 Year
  Sex: Female

DRUGS (4)
  1. NICORETTE [Suspect]
     Indication: EX-SMOKER
     Dosage: NASAL
     Route: 045
     Dates: start: 20050104, end: 20050117
  2. MEFENAMIC ACID [Concomitant]
  3. TRANEXAMIC ACID               (TRANEXAMIC ACID) [Concomitant]
  4. GLUCOSE              (GLUCOSE) [Concomitant]

REACTIONS (2)
  - RASH ERYTHEMATOUS [None]
  - RASH PRURITIC [None]
